FAERS Safety Report 4737210-X (Version None)
Quarter: 2005Q3

REPORT INFORMATION
  Report Type: 
  Country: None (occurrence: None)
  Receive Date: 20050808
  Receipt Date: 20050309
  Transmission Date: 20060218
  Serious: Yes (Hospitalization, Disabling)
  Sender: FDA-Public Use
  Company Number: US-MERCK-0503USA01995

PATIENT
  Age: 42 Year
  Sex: Male
  Weight: 95 kg

DRUGS (3)
  1. VIOXX [Suspect]
     Indication: NECK PAIN
     Route: 048
     Dates: start: 20010401, end: 20030429
  2. VIOXX [Suspect]
     Route: 048
     Dates: start: 20010401, end: 20030429
  3. CELEBREX [Concomitant]
     Indication: NECK PAIN
     Route: 065
     Dates: start: 20010101, end: 20020101

REACTIONS (13)
  - ANXIETY [None]
  - BALANCE DISORDER [None]
  - BASILAR MIGRAINE [None]
  - CEREBROVASCULAR ACCIDENT [None]
  - DEPRESSION [None]
  - HYPERTENSION [None]
  - PANIC DISORDER [None]
  - PHOTOPHOBIA [None]
  - SELF-MEDICATION [None]
  - SLEEP DISORDER [None]
  - VERTEBRAL ARTERY OCCLUSION [None]
  - VERTIGO [None]
  - VISUAL DISTURBANCE [None]
